FAERS Safety Report 19982658 (Version 2)
Quarter: 2021Q4

REPORT INFORMATION
  Report Type: Spontaneous
  Country: IE (occurrence: IE)
  Receive Date: 20211022
  Receipt Date: 20211112
  Transmission Date: 20220303
  Serious: Yes (Life-Threatening)
  Sender: FDA-Public Use
  Company Number: None

PATIENT
  Age: 76 Year
  Sex: Male
  Weight: 92 kg

DRUGS (12)
  1. ALTEPLASE [Suspect]
     Active Substance: ALTEPLASE
     Indication: Thrombolysis
     Dosage: BOLUS 8ML GIVEN AT 12.25PM, INFUSION OF 75MLS COMMENCED (ONLY 36MLS INFUSED THEN STOPPED DUE TO REAC
     Route: 040
     Dates: end: 20210910
  2. ALTEPLASE [Suspect]
     Active Substance: ALTEPLASE
     Route: 065
  3. ASPIRIN [Concomitant]
     Active Substance: ASPIRIN
     Route: 048
  4. VITAMIN B12 [Concomitant]
     Active Substance: CYANOCOBALAMIN
  5. OPTIRAY 350 [Concomitant]
     Active Substance: IOVERSOL
     Route: 042
     Dates: start: 202109
  6. BISOPROLOL [Concomitant]
     Active Substance: BISOPROLOL
     Route: 048
  7. IRON [Concomitant]
     Active Substance: IRON
     Route: 048
  8. ROSUVASTATIN [Concomitant]
     Active Substance: ROSUVASTATIN
     Route: 048
  9. VENLAFAXINE HYDROCHLORIDE [Concomitant]
     Active Substance: VENLAFAXINE HYDROCHLORIDE
     Route: 048
  10. ERGOCALCIFEROL [Concomitant]
     Active Substance: ERGOCALCIFEROL
  11. NEURONTIN [Concomitant]
     Active Substance: GABAPENTIN
     Dosage: STRENGTH: 100MG
  12. TEVETENS [Concomitant]
     Dosage: STRENGTH: 600MG
     Route: 048

REACTIONS (7)
  - Shock [Recovered/Resolved]
  - Obstructive airways disorder [Recovered/Resolved]
  - Stridor [Recovered/Resolved]
  - Angioedema [Recovered/Resolved]
  - Anaphylactic reaction [Recovered/Resolved]
  - Tachycardia [Recovered/Resolved]
  - Hypotension [Recovered/Resolved]

NARRATIVE: CASE EVENT DATE: 20210910
